FAERS Safety Report 8374475-X (Version None)
Quarter: 2012Q2

REPORT INFORMATION
  Report Type: 
  Country: None (occurrence: None)
  Receive Date: 20120521
  Receipt Date: 20120515
  Transmission Date: 20120825
  Serious: Yes (Other)
  Sender: FDA-Public Use
  Company Number: CHPA2012US010380

PATIENT
  Sex: Female

DRUGS (3)
  1. ANTIHYPERTENSIVE DRUGS [Concomitant]
     Indication: HYPERTENSION
  2. PREVACID 24 HR [Suspect]
     Indication: GASTROOESOPHAGEAL REFLUX DISEASE
     Dosage: 15 MG, QD
     Route: 048
     Dates: start: 20110501
  3. SYNTHROID [Concomitant]

REACTIONS (4)
  - KIDNEY INFECTION [None]
  - OFF LABEL USE [None]
  - FEELING ABNORMAL [None]
  - INCORRECT DRUG ADMINISTRATION DURATION [None]
